FAERS Safety Report 17268452 (Version 1)
Quarter: 2020Q1

REPORT INFORMATION
  Report Type: Spontaneous
  Country: IQ (occurrence: IQ)
  Receive Date: 20200114
  Receipt Date: 20200114
  Transmission Date: 20200409
  Serious: Yes (Life-Threatening, Other)
  Sender: FDA-Public Use
  Company Number: IQ-MYLANLABS-2020M1005466

PATIENT
  Age: 24 Year
  Sex: Female
  Weight: 101 kg

DRUGS (9)
  1. BUPIVACAINE MYLAN [Suspect]
     Active Substance: BUPIVACAINE
     Indication: SPINAL ANAESTHESIA
     Dosage: 10 MILLIGRAM
     Dates: start: 20191128, end: 20191128
  2. ATRACURIUM [Concomitant]
     Active Substance: ATRACURIUM
     Indication: CARDIAC ARREST
     Dosage: 25 MILLIGRAM
     Route: 042
     Dates: start: 20191128, end: 20191128
  3. OXYTOCIN. [Concomitant]
     Active Substance: OXYTOCIN
     Indication: UTERINE SPASM
     Dosage: 30 UIL IN2L OF RINGER LACTATE
     Dates: start: 20191128, end: 20191128
  4. ATROPINE. [Concomitant]
     Active Substance: ATROPINE
     Indication: CARDIAC ARREST
     Dosage: 2 MILLIGRAM
     Route: 042
     Dates: start: 20191128, end: 20191128
  5. DEXAMETHASONE. [Concomitant]
     Active Substance: DEXAMETHASONE
     Dosage: UNK
     Route: 042
  6. EPHEDRINE. [Concomitant]
     Active Substance: EPHEDRINE
     Indication: CARDIAC ARREST
     Dosage: 30 MILLIGRAM,SPLIT IN 4 BOLUS
     Route: 042
     Dates: start: 20191128, end: 20191128
  7. THIOPENTAL [Concomitant]
     Active Substance: THIOPENTAL
     Indication: CARDIAC ARREST
     Dosage: 500 MILLIGRAM
     Route: 042
     Dates: start: 20191128, end: 20191128
  8. CEFAZOLINE                         /00288501/ [Concomitant]
     Active Substance: CEFAZOLIN
     Indication: ANTIBIOTIC PROPHYLAXIS
     Dosage: 2 GRAM
     Route: 042
     Dates: start: 20191128, end: 20191128
  9. NEOSTIGMINE. [Concomitant]
     Active Substance: NEOSTIGMINE METHYLSULFATE
     Indication: CARDIAC ARREST
     Dosage: 2.5 MILLIGRAM
     Route: 042
     Dates: start: 20191128, end: 20191128

REACTIONS (7)
  - Vomiting [Recovered/Resolved]
  - Cardiac arrest [Recovered/Resolved]
  - Hypotension [Recovered/Resolved]
  - Maternal exposure during pregnancy [Recovered/Resolved]
  - Tongue biting [Recovered/Resolved]
  - Seizure [Recovered/Resolved]
  - Dyspnoea [Recovered/Resolved]

NARRATIVE: CASE EVENT DATE: 20191128
